FAERS Safety Report 5392011-7 (Version None)
Quarter: 2007Q3

REPORT INFORMATION
  Report Type: 
  Country: None (occurrence: None)
  Receive Date: 20070717
  Receipt Date: 20070717
  Transmission Date: 20080115
  Serious: Yes (Other)
  Sender: FDA-Public Use
  Company Number: None

PATIENT
  Sex: Female
  Weight: 66.6788 kg

DRUGS (1)
  1. PAROXETINE 20MG ONE PO DAILY [Suspect]
     Indication: DEPRESSION
     Dosage: ONE PO DAILY 1-2 WKS DURATION
     Route: 048

REACTIONS (3)
  - HOT FLUSH [None]
  - HYPERSOMNIA [None]
  - IRRITABILITY [None]
